FAERS Safety Report 18711463 (Version 8)
Quarter: 2021Q3

REPORT INFORMATION
  Report Type: Spontaneous
  Country: US (occurrence: US)
  Receive Date: 20210107
  Receipt Date: 20210702
  Transmission Date: 20211014
  Serious: No
  Sender: FDA-Public Use
  Company Number: US-GLAXOSMITHKLINE-US2020AMR257329

PATIENT
  Age: 59 Year
  Sex: Female

DRUGS (7)
  1. ZEJULA [Suspect]
     Active Substance: NIRAPARIB
     Indication: MALIGNANT PERITONEAL NEOPLASM
     Dosage: 200 MG, QD
     Route: 048
     Dates: start: 20201221
  2. ZEJULA [Suspect]
     Active Substance: NIRAPARIB
     Dosage: 200 MG, QD
     Dates: start: 2020
  3. ZEJULA [Suspect]
     Active Substance: NIRAPARIB
     Dosage: 200 MG, QD
  4. ZEJULA [Suspect]
     Active Substance: NIRAPARIB
     Dosage: 200 MG, QD
     Route: 048
  5. ZEJULA [Suspect]
     Active Substance: NIRAPARIB
     Dosage: 200 MG, QD
  6. ZEJULA [Suspect]
     Active Substance: NIRAPARIB
     Dosage: 200 MG, QD
     Route: 048
  7. ZEJULA [Suspect]
     Active Substance: NIRAPARIB
     Dosage: 200 MG, QD
     Route: 048

REACTIONS (20)
  - Seasonal allergy [Unknown]
  - Blood disorder [Unknown]
  - Platelet count decreased [Not Recovered/Not Resolved]
  - Cough [Not Recovered/Not Resolved]
  - Hyperaesthesia teeth [Unknown]
  - Throat irritation [Unknown]
  - Wheezing [Unknown]
  - Cardiac murmur [Unknown]
  - Nasopharyngitis [Unknown]
  - Rash [Unknown]
  - Insomnia [Not Recovered/Not Resolved]
  - Multiple allergies [Unknown]
  - Product dose omission issue [Unknown]
  - Arthritis [Unknown]
  - Nasal congestion [Unknown]
  - Red blood cell count decreased [Recovering/Resolving]
  - Pruritus [Unknown]
  - Skin hyperpigmentation [Unknown]
  - Dyspnoea [Unknown]
  - Inflammation [Unknown]

NARRATIVE: CASE EVENT DATE: 202012
